FAERS Safety Report 9605871 (Version 1)
Quarter: 2013Q4

REPORT INFORMATION
  Report Type: Spontaneous
  Country: GB (occurrence: GB)
  Receive Date: 20131008
  Receipt Date: 20131008
  Transmission Date: 20140711
  Serious: Yes (Death)
  Sender: FDA-Public Use
  Company Number: GB-OPTIMER-20130386

PATIENT
  Sex: Female

DRUGS (1)
  1. DIFICLIR [Suspect]
     Indication: CLOSTRIDIUM DIFFICILE COLITIS
     Dosage: UNK

REACTIONS (1)
  - Disease progression [Fatal]
